FAERS Safety Report 4290311-5 (Version None)
Quarter: 2004Q1

REPORT INFORMATION
  Report Type: 
  Country: None (occurrence: None)
  Receive Date: 20040210
  Receipt Date: 20031219
  Transmission Date: 20041129
  Serious: Yes (Hospitalization)
  Sender: FDA-Public Use
  Company Number: JP-ROCHE-354816

PATIENT
  Age: 28 Year
  Sex: Female

DRUGS (2)
  1. TAMIFLU [Suspect]
     Route: 048
     Dates: start: 20031216, end: 20031217
  2. BROACT [Concomitant]
     Indication: PROPHYLAXIS
     Route: 042
     Dates: start: 20031217, end: 20031220

REACTIONS (3)
  - EXTRASYSTOLES [None]
  - HYPOTHERMIA [None]
  - SYNCOPE [None]
